FAERS Safety Report 9722451 (Version 2)
Quarter: 2013Q4

REPORT INFORMATION
  Report Type: Spontaneous
  Country: FR (occurrence: FR)
  Receive Date: 20131202
  Receipt Date: 20131224
  Transmission Date: 20140711
  Serious: Yes (Hospitalization)
  Sender: FDA-Public Use
  Company Number: PHHY2013FR138963

PATIENT
  Age: 58 Year
  Sex: Female

DRUGS (3)
  1. ZOMETA [Suspect]
     Indication: METASTASES TO BONE
     Dosage: 4 MG, 1 DF PER MONTH
     Route: 042
     Dates: start: 20100408, end: 20110325
  2. ZOMETA [Suspect]
     Dosage: 4 MG, 1 DF PER MONTH
     Route: 042
     Dates: start: 20110915, end: 201204
  3. TAMOXIFENE [Concomitant]
     Indication: BREAST CANCER METASTATIC
     Dosage: 20 MG, QD
     Route: 048
     Dates: start: 201209, end: 20130528

REACTIONS (1)
  - Osteonecrosis of jaw [Not Recovered/Not Resolved]
